FAERS Safety Report 20544611 (Version 1)
Quarter: 2022Q1

REPORT INFORMATION
  Report Type: Other
  Country: CA (occurrence: CA)
  Receive Date: 20220303
  Receipt Date: 20220303
  Transmission Date: 20220424
  Serious: Yes (Other)
  Sender: FDA-Public Use
  Company Number: CA-CELLTRION INC.-2022CA002295

PATIENT

DRUGS (4)
  1. RITUXIMAB [Suspect]
     Active Substance: RITUXIMAB
     Indication: Systemic lupus erythematosus
     Dosage: UNK
     Route: 065
  2. RITUXIMAB [Suspect]
     Active Substance: RITUXIMAB
     Indication: Lymphoproliferative disorder
     Dosage: 1 GRAM
     Route: 065
  3. RITUXIMAB [Suspect]
     Active Substance: RITUXIMAB
     Dosage: UNK
     Route: 065
  4. RITUXIMAB [Suspect]
     Active Substance: RITUXIMAB
     Dosage: 1 GRAM
     Route: 065

REACTIONS (13)
  - Condition aggravated [Unknown]
  - Soft tissue disorder [Unknown]
  - Pleurisy [Unknown]
  - Vertigo [Unknown]
  - Alopecia [Unknown]
  - Arthralgia [Unknown]
  - Asthenia [Unknown]
  - Dyspnoea [Unknown]
  - Face oedema [Unknown]
  - Fatigue [Unknown]
  - Tinnitus [Unknown]
  - Off label use [Unknown]
  - Off label use [Unknown]
